FAERS Safety Report 8413460 (Version 2)
Quarter: 2013Q2

REPORT INFORMATION
  Report Type: Spontaneous
  Country: US (occurrence: None)
  Receive Date: 20111227
  Receipt Date: 20120426
  Transmission Date: 20140414
  Serious: Yes (Other)
  Sender: FDA-Public Use
  Company Number: PHEH2011US009863

PATIENT
  Age: 60 Year
  Sex: Male

DRUGS (1)
  1. GILENYA [Suspect]
     Indication: MULTIPLE SCLEROSIS
     Dosage: 0.5 MG, QD, ORAL
     Route: 048
     Dates: start: 20111102

REACTIONS (5)
  - FALL [None]
  - CYSTITIS [None]
  - PYREXIA [None]
  - ASTHENIA [None]
  - Neutropenia [None]
